FAERS Safety Report 9309510 (Version 1)
Quarter: 2013Q2

REPORT INFORMATION
  Report Type: Spontaneous
  Country: US (occurrence: US)
  Receive Date: 20130525
  Receipt Date: 20130525
  Transmission Date: 20140414
  Serious: No
  Sender: FDA-Public Use
  Company Number: US-BRISTOL-MYERS SQUIBB COMPANY-18726968

PATIENT
  Age: 49 Year
  Sex: Female
  Weight: 102.49 kg

DRUGS (13)
  1. BYDUREON [Suspect]
     Indication: TYPE 2 DIABETES MELLITUS
     Route: 058
     Dates: start: 201303
  2. LANTUS [Concomitant]
     Indication: TYPE 2 DIABETES MELLITUS
     Dosage: 1DF-40U
     Route: 058
  3. LANTUS [Concomitant]
     Indication: TYPE 2 DIABETES MELLITUS
     Route: 058
  4. LANTUS [Concomitant]
     Indication: TYPE 2 DIABETES MELLITUS
     Dosage: 1DF-50U
     Route: 058
  5. HUMALOG [Concomitant]
     Indication: TYPE 2 DIABETES MELLITUS
     Route: 058
  6. HUMALOG [Concomitant]
     Indication: TYPE 2 DIABETES MELLITUS
     Dosage: 1DF-60U
     Route: 058
  7. HUMALOG [Concomitant]
     Indication: TYPE 2 DIABETES MELLITUS
     Dosage: 1DF-40U
     Route: 058
  8. POTASSIUM [Concomitant]
  9. METFORMIN [Concomitant]
     Indication: TYPE 2 DIABETES MELLITUS
     Route: 048
  10. LASIX [Concomitant]
  11. BENICAR [Concomitant]
     Indication: HYPERTENSION
     Route: 048
  12. MACRODANTIN [Concomitant]
     Indication: URINARY TRACT INFECTION
  13. KLOR-CON [Concomitant]
     Route: 048

REACTIONS (4)
  - Muscle spasms [Recovering/Resolving]
  - Blood glucose decreased [Recovering/Resolving]
  - Nausea [Recovered/Resolved]
  - Off label use [Not Recovered/Not Resolved]
